FAERS Safety Report 24994716 (Version 1)
Quarter: 2025Q1

REPORT INFORMATION
  Report Type: Spontaneous
  Country: US (occurrence: US)
  Receive Date: 20250221
  Receipt Date: 20250221
  Transmission Date: 20250408
  Serious: Yes (Other)
  Sender: TEVA
  Company Number: US-TEVA-VS-3299549

PATIENT
  Age: 74 Year
  Sex: Male

DRUGS (10)
  1. MONTELUKAST [Suspect]
     Active Substance: MONTELUKAST
     Indication: Extubation
     Route: 065
  2. THEOPHYLLINE [Suspect]
     Active Substance: THEOPHYLLINE
     Indication: Extubation
     Route: 065
  3. CORTICOSTEROID NOS [Suspect]
     Active Substance: CORTICOSTEROID NOS
     Indication: Extubation
     Route: 055
  4. CETIRIZINE [Suspect]
     Active Substance: CETIRIZINE HYDROCHLORIDE
     Indication: Extubation
     Route: 065
  5. MAGNESIUM SULFATE [Suspect]
     Active Substance: MAGNESIUM SULFATE
     Indication: Extubation
     Route: 042
  6. KETAMINE [Suspect]
     Active Substance: KETAMINE
     Indication: Sedation
     Route: 065
  7. METHYLPREDNISOLONE [Suspect]
     Active Substance: METHYLPREDNISOLONE
     Indication: Extubation
     Route: 065
  8. METHYLPREDNISOLONE [Suspect]
     Active Substance: METHYLPREDNISOLONE
     Indication: Extubation
     Route: 065
  9. METHYLPREDNISOLONE [Suspect]
     Active Substance: METHYLPREDNISOLONE
     Indication: Extubation
     Route: 065
  10. METHYLPREDNISOLONE [Suspect]
     Active Substance: METHYLPREDNISOLONE
     Indication: Extubation
     Route: 065

REACTIONS (5)
  - Asthma-chronic obstructive pulmonary disease overlap syndrome [Unknown]
  - Prolonged expiration [Unknown]
  - Breath sounds absent [Unknown]
  - Weaning failure [Unknown]
  - Treatment failure [Unknown]
